FAERS Safety Report 21554484 (Version 1)
Quarter: 2022Q4

REPORT INFORMATION
  Report Type: Other
  Country: None (occurrence: IT)
  Receive Date: 20221104
  Receipt Date: 20221104
  Transmission Date: 20230113
  Serious: Yes (Death)
  Sender: FDA-Public Use
  Company Number: IT-MLV Pharma LLC-2134504

PATIENT
  Age: 38 Year
  Sex: Female

DRUGS (2)
  1. BETAMETHASONE DIPROPIONATE [Suspect]
     Active Substance: BETAMETHASONE DIPROPIONATE
     Indication: Maternal therapy to enhance foetal lung maturity
     Route: 030
  2. CISPLATIN [Suspect]
     Active Substance: CISPLATIN
     Route: 065

REACTIONS (3)
  - Pelvic discomfort [Unknown]
  - Drug ineffective [Unknown]
  - Cervix carcinoma [Fatal]
